FAERS Safety Report 12110343 (Version 6)
Quarter: 2016Q4

REPORT INFORMATION
  Report Type: Report from Study
  Country: US (occurrence: US)
  Receive Date: 20160224
  Receipt Date: 20161003
  Transmission Date: 20170206
  Serious: Yes (Hospitalization)
  Sender: FDA-Public Use
  Company Number: US-SA-2016SA036296

PATIENT
  Age: 43 Year
  Sex: Female

DRUGS (1)
  1. LEMTRADA [Suspect]
     Active Substance: ALEMTUZUMAB
     Indication: MULTIPLE SCLEROSIS
     Route: 041
     Dates: start: 20160125, end: 20160129

REACTIONS (23)
  - Malaise [Unknown]
  - Frustration tolerance decreased [Not Recovered/Not Resolved]
  - Asthenia [Unknown]
  - Pyrexia [Not Recovered/Not Resolved]
  - Eye pain [Not Recovered/Not Resolved]
  - Blood pressure increased [Recovered/Resolved]
  - Asthenia [Not Recovered/Not Resolved]
  - Headache [Not Recovered/Not Resolved]
  - Urinary tract infection [Unknown]
  - Pain [Recovered/Resolved]
  - Rash [Recovered/Resolved]
  - Neutrophil count decreased [Unknown]
  - Vision blurred [Recovered/Resolved]
  - Sensory disturbance [Recovered/Resolved]
  - Cytokine release syndrome [Recovered/Resolved]
  - Leukocyturia [Not Recovered/Not Resolved]
  - Fatigue [Unknown]
  - Head discomfort [Recovered/Resolved]
  - Paraesthesia [Recovered/Resolved]
  - Anaemia [Not Recovered/Not Resolved]
  - White blood cell count decreased [Not Recovered/Not Resolved]
  - White blood cells urine positive [Not Recovered/Not Resolved]
  - Acne [Unknown]

NARRATIVE: CASE EVENT DATE: 2016
